FAERS Safety Report 26149782 (Version 1)
Quarter: 2025Q4

REPORT INFORMATION
  Report Type: Spontaneous
  Country: US (occurrence: None)
  Receive Date: 20251211
  Receipt Date: 20251211
  Transmission Date: 20260117
  Serious: No
  Sender: FDA-CTU
  Company Number: None

PATIENT
  Sex: Male

DRUGS (5)
  1. COSENTYX [Suspect]
     Active Substance: SECUKINUMAB
     Indication: Chronic inflammatory demyelinating polyradiculoneuropathy
     Dosage: FREQUENCY : MONTHLY;?FREQ: INJECT 300 MG BY SUBCUTANEOUS ROUTE EVERY 4 WEEKS IN THE ABDOMEN, THIGH, QR OUTER AREA OF ?UPPER ARM (ROTATE SITES)
     Route: 058
     Dates: start: 20240409
  2. AMOXICILLIN [Concomitant]
     Active Substance: AMOXICILLIN
  3. CEPHALEXIN [Concomitant]
     Active Substance: CEPHALEXIN
  4. LOVASTAIN TAB 40MG [Concomitant]
  5. NABUMETONE TAB 40MG TAB 500MG [Concomitant]

REACTIONS (3)
  - Anorectal disorder [None]
  - Condition aggravated [None]
  - Product dose omission in error [None]
